FAERS Safety Report 4933433-5 (Version None)
Quarter: 2006Q1

REPORT INFORMATION
  Report Type: 
  Country: None (occurrence: None)
  Receive Date: 20060306
  Receipt Date: 20060222
  Transmission Date: 20060701
  Serious: Yes (Other)
  Sender: FDA-Public Use
  Company Number: GB-GLAXOSMITHKLINE-B0413182A

PATIENT
  Age: 78 Year
  Sex: Male

DRUGS (4)
  1. AVANDIA [Suspect]
     Dosage: 8MG PER DAY
     Route: 048
     Dates: start: 20060101
  2. METFORMIN [Concomitant]
  3. GLICLAZIDE [Concomitant]
  4. DOXYCYCLINE [Concomitant]

REACTIONS (1)
  - VISUAL ACUITY REDUCED [None]
